FAERS Safety Report 7590809-8 (Version None)
Quarter: 2011Q3

REPORT INFORMATION
  Report Type: 
  Country: None (occurrence: None)
  Receive Date: 20110705
  Receipt Date: 20110622
  Transmission Date: 20111222
  Serious: Yes (Hospitalization)
  Sender: FDA-Public Use
  Company Number: PHHY2011FR36915

PATIENT

DRUGS (3)
  1. IMATINIB MESYLATE [Suspect]
     Indication: CHRONIC MYELOID LEUKAEMIA
     Dosage: UNK
     Route: 048
     Dates: end: 20110401
  2. SPRYCEL [Suspect]
     Dosage: UNK
     Dates: start: 20101001
  3. TASIGNA [Suspect]
     Dates: start: 20100401, end: 20101001

REACTIONS (2)
  - IATROGENIC INJURY [None]
  - PLEURAL EFFUSION [None]
